FAERS Safety Report 12388763 (Version 5)
Quarter: 2016Q4

REPORT INFORMATION
  Report Type: Spontaneous
  Country: GB (occurrence: GB)
  Receive Date: 20160520
  Receipt Date: 20161202
  Transmission Date: 20170207
  Serious: Yes (Other)
  Sender: FDA-Public Use
  Company Number: GB-SA-2016SA096138

PATIENT
  Age: 69 Year
  Sex: Female
  Weight: 90 kg

DRUGS (7)
  1. FABRAZYME [Suspect]
     Active Substance: AGALSIDASE BETA
     Indication: FABRY^S DISEASE
     Route: 041
     Dates: start: 201501
  2. BISOPROLOL [Concomitant]
     Active Substance: BISOPROLOL
     Dosage: APPROX 1 YEAR
     Route: 048
  3. BENDROFLUMETHIAZIDE [Concomitant]
     Active Substance: BENDROFLUMETHIAZIDE
     Route: 048
  4. WARFARIN [Concomitant]
     Active Substance: WARFARIN
     Dosage: 4MG ALTERNATING 3MG DAILY, STARTED APPROX 2 YEARS
     Route: 048
  5. BISOPROLOL [Concomitant]
     Active Substance: BISOPROLOL
     Dosage: EARLY APRIL
     Route: 048
  6. ERYTHROMYCIN. [Concomitant]
     Active Substance: ERYTHROMYCIN
     Indication: SPLENECTOMY
     Route: 048
  7. FABRAZYME [Suspect]
     Active Substance: AGALSIDASE BETA
     Indication: FABRY^S DISEASE
     Route: 041
     Dates: start: 201501

REACTIONS (10)
  - Heart rate irregular [Not Recovered/Not Resolved]
  - Dyspnoea exertional [Unknown]
  - Fatigue [Unknown]
  - Atrial fibrillation [Not Recovered/Not Resolved]
  - Feeling abnormal [Unknown]
  - Chest discomfort [Unknown]
  - Pain in extremity [Unknown]
  - Myalgia [Unknown]
  - Unevaluable event [Unknown]
  - Palpitations [Recovered/Resolved]

NARRATIVE: CASE EVENT DATE: 2016
